FAERS Safety Report 16269631 (Version 1)
Quarter: 2019Q2

REPORT INFORMATION
  Report Type: Spontaneous
  Country: US (occurrence: US)
  Receive Date: 20190503
  Receipt Date: 20190503
  Transmission Date: 20190711
  Serious: Yes (Other)
  Sender: FDA-Public Use
  Company Number: US-MYLANLABS-2019M1041683

PATIENT
  Age: 48 Year
  Sex: Male

DRUGS (4)
  1. AVASTIN [Concomitant]
     Active Substance: BEVACIZUMAB
     Indication: COLON CANCER METASTATIC
     Route: 065
  2. FLUOROURACIL. [Suspect]
     Active Substance: FLUOROURACIL
     Indication: COLON CANCER METASTATIC
     Route: 065
  3. IRINOTECAN [Concomitant]
     Active Substance: IRINOTECAN
     Indication: COLON CANCER METASTATIC
     Route: 065
  4. LEUCOVORIN                         /00566701/ [Concomitant]
     Active Substance: LEUCOVORIN
     Indication: COLON CANCER METASTATIC
     Route: 065

REACTIONS (7)
  - Mitral valve incompetence [Recovering/Resolving]
  - Left ventricular dysfunction [Recovering/Resolving]
  - Sinus tachycardia [Recovering/Resolving]
  - Pulmonary oedema [Recovering/Resolving]
  - Pulmonary artery thrombosis [Recovering/Resolving]
  - Cardiac failure [Recovering/Resolving]
  - Cardiomyopathy [Recovering/Resolving]
